FAERS Safety Report 19504904 (Version 1)
Quarter: 2021Q3

REPORT INFORMATION
  Report Type: Spontaneous
  Country: US (occurrence: US)
  Receive Date: 20210707
  Receipt Date: 20210707
  Transmission Date: 20211014
  Serious: No
  Sender: FDA-Public Use
  Company Number: US-SA-2021SA222804

PATIENT
  Sex: Female

DRUGS (15)
  1. FABRAZYME [Suspect]
     Active Substance: AGALSIDASE BETA
     Indication: LIPIDOSIS
     Dosage: 100 MG, QOW
     Route: 042
     Dates: start: 20110221
  2. LEXAPRO [Concomitant]
     Active Substance: ESCITALOPRAM OXALATE
  3. HEPARIN [Concomitant]
     Active Substance: HEPARIN SODIUM
  4. EPINEPHRINE. [Concomitant]
     Active Substance: EPINEPHRINE
  5. LISINOPRIL. [Concomitant]
     Active Substance: LISINOPRIL
  6. FLONASE [MOMETASONE FUROATE] [Concomitant]
     Active Substance: MOMETASONE FUROATE
  7. ASPIRIN [ACETYLSALICYLIC ACID] [Concomitant]
     Active Substance: ASPIRIN
  8. DIPHENHYDRAMINE. [Concomitant]
     Active Substance: DIPHENHYDRAMINE
  9. FABRAZYME [Suspect]
     Active Substance: AGALSIDASE BETA
     Indication: FABRY^S DISEASE
  10. DEXILANT [Concomitant]
     Active Substance: DEXLANSOPRAZOLE
  11. LMX4 [Concomitant]
     Active Substance: LIDOCAINE
  12. STERILE WATER [Concomitant]
     Active Substance: WATER
  13. ACETAMINOPHEN. [Concomitant]
     Active Substance: ACETAMINOPHEN
  14. ATORVASTATIN [Concomitant]
     Active Substance: ATORVASTATIN
  15. NORMAL SALINE [Concomitant]
     Active Substance: SODIUM CHLORIDE

REACTIONS (1)
  - Weight loss poor [Unknown]
